FAERS Safety Report 18917344 (Version 1)
Quarter: 2021Q1

REPORT INFORMATION
  Report Type: Spontaneous
  Country: CN (occurrence: CN)
  Receive Date: 20210219
  Receipt Date: 20210219
  Transmission Date: 20210420
  Serious: Yes (Hospitalization)
  Sender: FDA-Public Use
  Company Number: NVSC2021CN035583

PATIENT
  Age: 40 Year
  Sex: Male

DRUGS (6)
  1. DICLOFENAC SODIUM. [Concomitant]
     Active Substance: DICLOFENAC SODIUM
     Indication: ANALGESIC THERAPY
     Dosage: 0.1 G, QD (FORMULATION: SUSTAINED RELEASE TABLETS)
     Route: 048
     Dates: start: 20210128, end: 20210128
  2. TONG TAI [Concomitant]
     Indication: ANALGESIC THERAPY
  3. TONG TAI [Concomitant]
     Indication: PROMOTION OF PERIPHERAL CIRCULATION
     Dosage: 10 ML, TID
     Route: 048
     Dates: start: 20210128, end: 20210128
  4. TONG TAI [Concomitant]
     Indication: ILL-DEFINED DISORDER
  5. CARBAMAZEPINE. [Suspect]
     Active Substance: CARBAMAZEPINE
     Indication: ANALGESIC THERAPY
     Dosage: 0.1 G, BID
     Route: 048
     Dates: start: 20210128, end: 20210128
  6. TONG TAI [Concomitant]
     Indication: BLOOD DISORDER

REACTIONS (3)
  - Rash [Unknown]
  - Pruritus [Unknown]
  - Blister [Unknown]

NARRATIVE: CASE EVENT DATE: 20210128
